FAERS Safety Report 5905972-1 (Version None)
Quarter: 2008Q4

REPORT INFORMATION
  Report Type: 
  Country: None (occurrence: None)
  Receive Date: 20081002
  Receipt Date: 20080927
  Transmission Date: 20090506
  Serious: Yes (Hospitalization)
  Sender: FDA-Public Use
  Company Number: US-MERCK-0809USA04944

PATIENT
  Sex: Male

DRUGS (2)
  1. ISENTRESS [Suspect]
     Indication: DRUG USE FOR UNKNOWN INDICATION
     Route: 048
     Dates: start: 20080601, end: 20080923
  2. COMBIVIR [Concomitant]
     Indication: DRUG USE FOR UNKNOWN INDICATION
     Route: 065

REACTIONS (2)
  - DEPRESSION [None]
  - GENERAL SYMPTOM [None]
